FAERS Safety Report 6250697-9 (Version None)
Quarter: 2009Q2

REPORT INFORMATION
  Report Type: 
  Country: None (occurrence: None)
  Receive Date: 20090626
  Receipt Date: 20090619
  Transmission Date: 20091009
  Serious: Yes (Other)
  Sender: FDA-Public Use
  Company Number: ADR5392009

PATIENT
  Sex: Female

DRUGS (1)
  1. ALENDRONIC ACID            (MFR. UNKNOWN) [Suspect]
     Indication: OSTEOPOROSIS
     Dosage: ORAL
     Route: 048

REACTIONS (1)
  - ATRIAL FIBRILLATION [None]
